FAERS Safety Report 19954694 (Version 1)
Quarter: 2021Q4

REPORT INFORMATION
  Report Type: Spontaneous
  Country: US (occurrence: US)
  Receive Date: 20211014
  Receipt Date: 20211014
  Transmission Date: 20220303
  Serious: Yes (Other)
  Sender: FDA-Public Use
  Company Number: None

PATIENT
  Age: 74 Year
  Sex: Female
  Weight: 51.75 kg

DRUGS (5)
  1. REGEN-COV [Suspect]
     Active Substance: CASIRIVIMAB\IMDEVIMAB
     Indication: COVID-19
     Dosage: ?          OTHER FREQUENCY:ONCE;
     Route: 042
     Dates: start: 20211009, end: 20211009
  2. Sodium chloride 09% 1 liter [Concomitant]
     Dates: start: 20211009, end: 20211009
  3. Benadryl 50mg IV [Concomitant]
     Dates: start: 20211009, end: 20211009
  4. pepcid 50 mg IV [Concomitant]
     Dates: start: 20211009, end: 20211009
  5. methylprednisone sodium succinate 125 mg IV [Concomitant]
     Dates: start: 20211009, end: 20211009

REACTIONS (4)
  - Paraesthesia oral [None]
  - Paraesthesia [None]
  - Swelling of eyelid [None]
  - Urticaria [None]

NARRATIVE: CASE EVENT DATE: 20211009
